FAERS Safety Report 7801003-7 (Version None)
Quarter: 2011Q4

REPORT INFORMATION
  Report Type: 
  Country: None (occurrence: None)
  Receive Date: 20111007
  Receipt Date: 20110928
  Transmission Date: 20120403
  Serious: Yes (Hospitalization)
  Sender: FDA-Public Use
  Company Number: US-BIOGENIDEC-2011BI029385

PATIENT
  Sex: Female
  Weight: 73 kg

DRUGS (13)
  1. AVONEX [Suspect]
     Indication: MULTIPLE SCLEROSIS
     Route: 030
  2. LOMOTIL [Concomitant]
     Indication: DIARRHOEA
  3. ARICEPT [Concomitant]
     Indication: MEMORY IMPAIRMENT
  4. AVONEX [Suspect]
     Route: 030
     Dates: start: 20060901, end: 20061201
  5. AMANTADINE HCL [Concomitant]
     Indication: DEPRESSION
  6. BUTALBITAL [Concomitant]
     Indication: PAIN
  7. ZOLOFT [Concomitant]
     Indication: DEPRESSION
  8. FLAXSEED OIL [Concomitant]
  9. IBUPROFEN [Concomitant]
  10. MEDICATION (NOS) [Concomitant]
     Indication: MEMORY IMPAIRMENT
  11. BUTALBITAL [Concomitant]
     Indication: HEADACHE
  12. VITAMIN D [Concomitant]
  13. AVONEX [Suspect]
     Route: 030
     Dates: start: 20110201

REACTIONS (1)
  - CHONDROPATHY [None]
